FAERS Safety Report 17454751 (Version 1)
Quarter: 2020Q1

REPORT INFORMATION
  Report Type: Spontaneous
  Country: US (occurrence: US)
  Receive Date: 20200211
  Receipt Date: 20200211
  Transmission Date: 20200409
  Serious: No
  Sender: FDA-Public Use
  Company Number: None

PATIENT
  Age: 73 Year
  Sex: Male
  Weight: 88.45 kg

DRUGS (8)
  1. TUMS [Concomitant]
     Active Substance: CALCIUM CARBONATE
  2. VITAMIN B COMPLEX [Concomitant]
     Active Substance: CYANOCOBALAMIN\DEXPANTHENOL\NIACINAMIDE\PYRIDOXINE HYDROCHLORIDE\RIBOFLAVIN 5^-PHOSPHATE SODIUM\THIAMINE HYDROCHLORIDE\VITAMIN B COMPLEX
  3. METOPROLOL. [Concomitant]
     Active Substance: METOPROLOL
  4. LISINOPRIL. [Concomitant]
     Active Substance: LISINOPRIL
  5. PROBIOTIC [Concomitant]
     Active Substance: PROBIOTICS NOS
  6. 81 MG ASPIRIN [Concomitant]
     Active Substance: ASPIRIN
  7. REPATHA [Suspect]
     Active Substance: EVOLOCUMAB
     Indication: BLOOD CHOLESTEROL INCREASED
     Dosage: ?          QUANTITY:6 DF DOSAGE FORM;?
     Route: 058
     Dates: start: 20191120, end: 20191204
  8. PREDNISONE. [Concomitant]
     Active Substance: PREDNISONE

REACTIONS (5)
  - Bowel movement irregularity [None]
  - Diarrhoea [None]
  - Dyspepsia [None]
  - Abdominal distension [None]
  - Flatulence [None]

NARRATIVE: CASE EVENT DATE: 20191204
